FAERS Safety Report 23356861 (Version 1)
Quarter: 2024Q1

REPORT INFORMATION
  Report Type: Spontaneous
  Country: US (occurrence: US)
  Receive Date: 20240102
  Receipt Date: 20240102
  Transmission Date: 20240410
  Serious: No
  Sender: FDA-Public Use
  Company Number: US-BRISTOL-MYERS SQUIBB COMPANY-2024-000597

PATIENT
  Age: 54 Year
  Sex: Female
  Weight: 49.895 kg

DRUGS (3)
  1. ELIQUIS [Suspect]
     Active Substance: APIXABAN
     Indication: May-Thurner syndrome
     Dosage: D
     Route: 048
  2. ELIQUIS [Suspect]
     Active Substance: APIXABAN
     Dosage: DOSE : UNAVAILABLE;     FREQ : EVERY 12 HOURS
     Route: 048
  3. ELIQUIS [Suspect]
     Active Substance: APIXABAN
     Dosage: DOSE : UNAVAILABLE;     FREQ : EVERY 12 HOURS
     Route: 048

REACTIONS (2)
  - Pain in extremity [Unknown]
  - Off label use [Unknown]
